FAERS Safety Report 10916466 (Version 1)
Quarter: 2015Q1

REPORT INFORMATION
  Report Type: Spontaneous
  Country: US (occurrence: None)
  Receive Date: 20150312
  Receipt Date: 20150312
  Transmission Date: 20150721
  Serious: Yes (Other)
  Sender: FDA-Public Use
  Company Number: None

PATIENT
  Age: 45 Year
  Sex: Female
  Weight: 86.18 kg

DRUGS (4)
  1. CLARITIN [Concomitant]
     Active Substance: LORATADINE
  2. DAILY MULTI VITAMINS [Concomitant]
  3. FLUOXETINE 20 MG AUROBINDO [Suspect]
     Active Substance: FLUOXETINE HYDROCHLORIDE
     Indication: DEPRESSION
     Dosage: TAKEN BY MOUTH 4 PILLS
     Route: 048
     Dates: start: 20150220, end: 20150309
  4. FLUOXETINE 20 MG AUROBINDO [Suspect]
     Active Substance: FLUOXETINE HYDROCHLORIDE
     Indication: ANXIETY
     Dosage: TAKEN BY MOUTH 4 PILLS
     Route: 048
     Dates: start: 20150220, end: 20150309

REACTIONS (3)
  - Product quality issue [None]
  - Drug ineffective [None]
  - Major depression [None]

NARRATIVE: CASE EVENT DATE: 20150309
